FAERS Safety Report 9080218 (Version 1)
Quarter: 2013Q1

REPORT INFORMATION
  Report Type: Report from Study
  Country: US (occurrence: US)
  Receive Date: 20130130
  Receipt Date: 20130130
  Transmission Date: 20140127
  Serious: No
  Sender: FDA-Public Use
  Company Number: US-ABBOTT-12P-163-0940303-00

PATIENT
  Age: 37 Year
  Sex: Female

DRUGS (13)
  1. HUMIRA 40 MG/ 0.8 ML PRE-FILLED SYRINGE [Suspect]
     Indication: RHEUMATOID ARTHRITIS
     Dates: start: 20120413
  2. METHOTREXATE [Concomitant]
     Indication: PRODUCT USED FOR UNKNOWN INDICATION
     Dosage: 4 EVERY SATURDAY
  3. CYCLOBENZAPRINE [Concomitant]
     Indication: PAIN
  4. REQUIP [Concomitant]
     Indication: RESTLESS LEGS SYNDROME
     Dosage: DAILY
  5. PEPCID [Concomitant]
     Indication: GASTROOESOPHAGEAL REFLUX DISEASE
     Dosage: 20MG DAILY
  6. HYDROXYCHLOROQUINE [Concomitant]
     Indication: PRODUCT USED FOR UNKNOWN INDICATION
  7. PREDNISONE [Concomitant]
     Indication: PRODUCT USED FOR UNKNOWN INDICATION
  8. FOLIC ACID [Concomitant]
     Indication: PRODUCT USED FOR UNKNOWN INDICATION
     Dosage: 1MG DAILY
  9. VICODIN [Concomitant]
     Indication: PRODUCT USED FOR UNKNOWN INDICATION
  10. IMITREX [Concomitant]
     Indication: HEADACHE
  11. DEPO SHOT [Concomitant]
     Indication: DYSMENORRHOEA
  12. DEPO SHOT [Concomitant]
     Indication: CONTRACEPTION
  13. EXCEDRIN MIGRAINE [Concomitant]
     Indication: PRODUCT USED FOR UNKNOWN INDICATION

REACTIONS (5)
  - Photophobia [Not Recovered/Not Resolved]
  - Hyperacusis [Not Recovered/Not Resolved]
  - Food intolerance [Not Recovered/Not Resolved]
  - Migraine [Recovering/Resolving]
  - Headache [Not Recovered/Not Resolved]
